FAERS Safety Report 8738165 (Version 4)
Quarter: 2014Q3

REPORT INFORMATION
  Report Type: Report from Study
  Country: JP (occurrence: JP)
  Receive Date: 20120823
  Receipt Date: 20140819
  Transmission Date: 20150326
  Serious: Yes (Other)
  Sender: FDA-Public Use
  Company Number: JP-MERCK-1205USA04419

PATIENT
  Age: 93 Year
  Sex: Female
  Weight: 47 kg

DRUGS (9)
  1. GLACTIV [Suspect]
     Active Substance: SITAGLIPTIN
     Indication: TYPE 2 DIABETES MELLITUS
     Dosage: 25 MG, QD
     Route: 048
     Dates: start: 20110107, end: 20120508
  2. LANIRAPID [Concomitant]
     Active Substance: METILDIGOXIN
     Dosage: UNK
     Dates: end: 20120508
  3. AMLODIPINE BESYLATE. [Concomitant]
     Active Substance: AMLODIPINE BESYLATE
     Dates: end: 20110405
  4. LUPRAC [Concomitant]
     Active Substance: TORSEMIDE
     Dosage: UNK
     Dates: end: 20110606
  5. ARTIST [Concomitant]
     Active Substance: CARVEDILOL
     Dates: end: 20110705
  6. PILSICAINIDE HYDROCHLORIDE [Concomitant]
     Active Substance: PILSICAINIDE HYDROCHLORIDE
     Dosage: UNK
     Dates: end: 20120508
  7. SPIRONOLACTONE. [Concomitant]
     Active Substance: SPIRONOLACTONE
     Dosage: 50 MG
  8. WARFARIN POTASSIUM [Concomitant]
     Active Substance: WARFARIN POTASSIUM
     Dosage: UNK
     Dates: end: 20120508
  9. SPIRONOLACTONE. [Concomitant]
     Active Substance: SPIRONOLACTONE
     Dosage: 25 MG
     Dates: end: 20120508

REACTIONS (2)
  - Pneumonia [Recovered/Resolved]
  - Bronchitis [Recovered/Resolved]

NARRATIVE: CASE EVENT DATE: 20110509
